FAERS Safety Report 8949549 (Version 1)
Quarter: 2012Q4

REPORT INFORMATION
  Report Type: 
  Country: US (occurrence: US)
  Receive Date: 20121206
  Receipt Date: 20121206
  Transmission Date: 20130627
  Serious: Yes (Death, Hospitalization)
  Sender: FDA-Public Use
  Company Number: US-VERTEX PHARMACEUTICALS INC.-2012-025595

PATIENT
  Age: 60 Year
  Sex: Male
  Weight: 89 kg

DRUGS (3)
  1. INCIVEK [Suspect]
     Indication: HEPATITIS C
     Dosage: 750 mg, tid
     Route: 048
     Dates: start: 20120211, end: 20120228
  2. PEGASYS [Suspect]
     Indication: HEPATITIS C
     Dosage: 180 ?g, qw
     Dates: start: 20120211, end: 20120228
  3. RIBAVIRIN [Suspect]
     Indication: HEPATITIS C
     Dosage: 600 mg, bid
     Dates: start: 20120211

REACTIONS (8)
  - Acute respiratory distress syndrome [Fatal]
  - Septic shock [Fatal]
  - Klebsiella bacteraemia [Unknown]
  - Hepatic encephalopathy [Unknown]
  - Haematemesis [Unknown]
  - Haemoglobin decreased [Unknown]
  - Neutropenia [Unknown]
  - Off label use [Unknown]
